FAERS Safety Report 7979954-2 (Version None)
Quarter: 2011Q4

REPORT INFORMATION
  Report Type: 
  Country: None (occurrence: None)
  Receive Date: 20111214
  Receipt Date: 20111130
  Transmission Date: 20120403
  Serious: Yes (Death, Other)
  Sender: FDA-Public Use
  Company Number: CN-ROCHE-766921

PATIENT

DRUGS (7)
  1. TACROLIMUS [Concomitant]
     Indication: SMALL INTESTINE TRANSPLANT
  2. ZENAPAX [Suspect]
     Indication: SMALL INTESTINE TRANSPLANT
     Route: 065
  3. GANCICLOVIR SODIUM [Concomitant]
     Indication: PNEUMONIA CYTOMEGALOVIRAL
  4. ACYCLOVIR [Concomitant]
     Indication: ANTIVIRAL PROPHYLAXIS
     Route: 048
  5. MYCOPHENOLATE MOFETIL (CELLCEPT) [Suspect]
     Indication: SMALL INTESTINE TRANSPLANT
  6. ACYCLOVIR [Concomitant]
     Indication: GRAFT INFECTION
     Route: 042
  7. GANCICLOVIR SODIUM [Concomitant]
     Indication: ANTIVIRAL PROPHYLAXIS
     Route: 042

REACTIONS (6)
  - GRAFT INFECTION [None]
  - GRAFT DYSFUNCTION [None]
  - ABDOMINAL INFECTION [None]
  - TRANSPLANT REJECTION [None]
  - INTRA-ABDOMINAL HAEMORRHAGE [None]
  - PNEUMONIA CYTOMEGALOVIRAL [None]
